FAERS Safety Report 10436294 (Version 1)
Quarter: 2014Q3

REPORT INFORMATION
  Report Type: Spontaneous
  Country: US (occurrence: None)
  Receive Date: 20140904
  Receipt Date: 20140904
  Transmission Date: 20150326
  Serious: Yes (Hospitalization)
  Sender: FDA-Public Use
  Company Number: BR14-321-AE

PATIENT
  Age: 1 Year
  Sex: Female

DRUGS (4)
  1. BUPRENORPHINE/NALOXONE SUBLINGUAL FILM 8 MG/2 MG [Suspect]
     Active Substance: BUPRENORPHINE\NALOXONE
  2. METHAMPHETAMINE [Concomitant]
     Active Substance: METHAMPHETAMINE
  3. NICOTINE. [Concomitant]
     Active Substance: NICOTINE
  4. AMPHETAMINE [Concomitant]
     Active Substance: AMPHETAMINE

REACTIONS (2)
  - Accidental exposure to product by child [None]
  - Adverse event [None]
